FAERS Safety Report 5332623-X (Version None)
Quarter: 2007Q2

REPORT INFORMATION
  Report Type: 
  Country: None (occurrence: None)
  Receive Date: 20070523
  Receipt Date: 20070515
  Transmission Date: 20071010
  Serious: Yes (Hospitalization, Other)
  Sender: FDA-Public Use
  Company Number: US-PFIZER INC-2006027792

PATIENT
  Sex: Female
  Weight: 72.6 kg

DRUGS (4)
  1. BEXTRA [Suspect]
     Indication: COMPRESSION FRACTURE
  2. LIPITOR [Concomitant]
  3. LISINOPRIL [Concomitant]
  4. WARFARIN SODIUM [Concomitant]

REACTIONS (5)
  - AMNESIA [None]
  - BLINDNESS [None]
  - CEREBROVASCULAR ACCIDENT [None]
  - DEPRESSION [None]
  - RASH [None]
